FAERS Safety Report 9728990 (Version 2)
Quarter: 2013Q4

REPORT INFORMATION
  Report Type: Report from Study
  Country: GB (occurrence: GB)
  Receive Date: 20131204
  Receipt Date: 20131217
  Transmission Date: 20140711
  Serious: Yes (Hospitalization)
  Sender: FDA-Public Use
  Company Number: GB-EISAI INC-E7389-04473-SOL-GB

PATIENT
  Age: 68 Year
  Sex: Female

DRUGS (2)
  1. HALAVEN [Suspect]
     Indication: BREAST CANCER METASTATIC
     Route: 041
     Dates: start: 20131022, end: 20131029
  2. HALAVEN [Suspect]
     Route: 041
     Dates: start: 20131119, end: 20131126

REACTIONS (7)
  - Fall [Unknown]
  - Hypophagia [Unknown]
  - Confusional state [Unknown]
  - White blood cells urine positive [Unknown]
  - Pyrexia [Not Recovered/Not Resolved]
  - Fatigue [Unknown]
  - Respiratory tract infection [Unknown]
